FAERS Safety Report 8406021-6 (Version None)
Quarter: 2012Q2

REPORT INFORMATION
  Report Type: 
  Country: None (occurrence: None)
  Receive Date: 20120529
  Receipt Date: 20100714
  Transmission Date: 20120825
  Serious: Yes (Other)
  Sender: FDA-Public Use
  Company Number: 010407

PATIENT

DRUGS (1)
  1. PLETAL [Suspect]
     Dosage: ORAL
     Route: 048

REACTIONS (1)
  - VITREOUS HAEMORRHAGE [None]
